FAERS Safety Report 25408658 (Version 1)
Quarter: 2025Q2

REPORT INFORMATION
  Report Type: Spontaneous
  Country: US (occurrence: US)
  Receive Date: 20250606
  Receipt Date: 20250606
  Transmission Date: 20250717
  Serious: No
  Sender: ASCENDIS PHARMA
  Company Number: US-ASCENDIS PHARMA-2025US008686

PATIENT

DRUGS (4)
  1. YORVIPATH [Suspect]
     Active Substance: PALOPEGTERIPARATIDE
     Indication: Product used for unknown indication
     Route: 065
  2. YORVIPATH [Suspect]
     Active Substance: PALOPEGTERIPARATIDE
     Route: 065
  3. YORVIPATH [Suspect]
     Active Substance: PALOPEGTERIPARATIDE
     Route: 065
  4. CALCIUM [Concomitant]
     Active Substance: CALCIUM
     Indication: Product used for unknown indication
     Route: 065

REACTIONS (1)
  - Prescribed overdose [Unknown]
